FAERS Safety Report 9732753 (Version 1)
Quarter: 2013Q4

REPORT INFORMATION
  Report Type: Spontaneous
  Country: JP (occurrence: JP)
  Receive Date: 20131204
  Receipt Date: 20131204
  Transmission Date: 20140711
  Serious: Yes (Death)
  Sender: FDA-Public Use
  Company Number: JP-GLAXOSMITHKLINE-B0949221A

PATIENT
  Age: 50 Year
  Sex: Female

DRUGS (1)
  1. VOTRIENT 200MG [Suspect]
     Indication: ENDOMETRIAL STROMAL SARCOMA
     Route: 048
     Dates: start: 20130805, end: 20131016

REACTIONS (1)
  - Cachexia [Fatal]
